FAERS Safety Report 16918231 (Version 1)
Quarter: 2019Q4

REPORT INFORMATION
  Report Type: Spontaneous
  Country: US (occurrence: US)
  Receive Date: 20190822
  Receipt Date: 20190822
  Transmission Date: 20200122
  Serious: No
  Sender: FDA-Public Use
  Company Number: None

PATIENT
  Age: 45 Year
  Sex: Female

DRUGS (1)
  1. AUBAGIO [Suspect]
     Active Substance: TERIFLUNOMIDE
     Route: 048
     Dates: start: 201907

REACTIONS (4)
  - Dry mouth [None]
  - Abdominal discomfort [None]
  - Diabetes mellitus inadequate control [None]
  - Pollakiuria [None]

NARRATIVE: CASE EVENT DATE: 20190822
